FAERS Safety Report 5133428-5 (Version None)
Quarter: 2006Q4

REPORT INFORMATION
  Report Type: 
  Country: None (occurrence: None)
  Receive Date: 20061024
  Receipt Date: 20060922
  Transmission Date: 20070319
  Serious: Yes (Hospitalization)
  Sender: FDA-Public Use
  Company Number: 2006SE05114

PATIENT
  Age: 21683 Day
  Sex: Female
  Weight: 68 kg

DRUGS (12)
  1. BLOPRESS TABLETS 8 [Suspect]
     Indication: HYPERTENSION
     Route: 048
     Dates: end: 20060515
  2. LIPITOR [Suspect]
     Indication: HYPERLIPIDAEMIA
     Route: 048
     Dates: end: 20060515
  3. NORVASC [Concomitant]
     Indication: HYPERTENSION
     Route: 048
  4. NORVASC [Concomitant]
     Route: 048
     Dates: start: 20060511, end: 20060515
  5. EUGLUCON [Concomitant]
     Indication: DIABETES MELLITUS
     Route: 048
  6. EUGLUCON [Concomitant]
     Route: 048
     Dates: start: 20060511, end: 20060515
  7. DASEN [Concomitant]
     Indication: BRONCHOPNEUMONIA
     Route: 048
  8. DASEN [Concomitant]
     Route: 048
     Dates: start: 20060511, end: 20060515
  9. MUCODYNE [Concomitant]
     Indication: BRONCHOPNEUMONIA
     Route: 048
  10. MUCODYNE [Concomitant]
     Route: 048
     Dates: start: 20060511, end: 20060515
  11. UNASYN [Concomitant]
     Indication: PNEUMONIA
     Route: 048
     Dates: start: 20060511, end: 20060515
  12. DALACIN [Concomitant]
     Indication: PNEUMONIA
     Route: 048
     Dates: start: 20060511, end: 20060515

REACTIONS (1)
  - RHABDOMYOLYSIS [None]
